FAERS Safety Report 5327166-3 (Version None)
Quarter: 2007Q2

REPORT INFORMATION
  Report Type: 
  Country: None (occurrence: None)
  Receive Date: 20070511
  Receipt Date: 20070502
  Transmission Date: 20071010
  Serious: Yes (Hospitalization)
  Sender: FDA-Public Use
  Company Number: 233673K06USA

PATIENT
  Age: 43 Year
  Sex: Female
  Weight: 76.6579 kg

DRUGS (6)
  1. REBIF [Suspect]
     Indication: MULTIPLE SCLEROSIS
     Dosage: 44 MCG
     Dates: end: 20061020
  2. TRAZODONE HCL [Concomitant]
  3. PREMARIN [Concomitant]
  4. SYNTHROID [Concomitant]
  5. TOPAMAX [Concomitant]
  6. ALLEGRA-D (ALLEGRA-D /01367401/) [Concomitant]

REACTIONS (5)
  - FURUNCLE [None]
  - PAIN [None]
  - PATHOGEN RESISTANCE [None]
  - STAPHYLOCOCCAL INFECTION [None]
  - VOMITING [None]
